FAERS Safety Report 16528434 (Version 4)
Quarter: 2019Q3

REPORT INFORMATION
  Report Type: Spontaneous
  Country: JP (occurrence: JP)
  Receive Date: 20190703
  Receipt Date: 20190806
  Transmission Date: 20191004
  Serious: Yes (Hospitalization, Other)
  Sender: FDA-Public Use
  Company Number: JP-JNJFOC-20190636227

PATIENT
  Age: 75 Year
  Sex: Female

DRUGS (6)
  1. MAGLAX [Concomitant]
     Active Substance: MAGNESIUM OXIDE
     Route: 048
  2. REMINYL [Suspect]
     Active Substance: GALANTAMINE
     Indication: DEMENTIA ALZHEIMER^S TYPE
     Dosage: OFF-LABEL USE 11 GALANTAMINE HYDROBROMIDE:4MG
     Route: 048
     Dates: start: 20190521, end: 20190610
  3. AMLODIPINE [Suspect]
     Active Substance: AMLODIPINE BESYLATE
     Indication: HYPERTENSION
     Route: 048
     Dates: start: 19970802, end: 20190611
  4. DOGMATYL [Concomitant]
     Active Substance: SULPIRIDE
     Indication: DEPRESSION
     Route: 048
  5. CLARITHROMYCIN. [Suspect]
     Active Substance: CLARITHROMYCIN
     Indication: PRODUCT USED FOR UNKNOWN INDICATION
     Route: 048
  6. CERCINE [Concomitant]
     Active Substance: DIAZEPAM
     Route: 048

REACTIONS (5)
  - Haemorrhage subcutaneous [Recovered/Resolved]
  - Off label use [Unknown]
  - Rhabdomyolysis [Recovering/Resolving]
  - Bronchitis [Recovered/Resolved]
  - Inappropriate schedule of product administration [Unknown]

NARRATIVE: CASE EVENT DATE: 20190521
